FAERS Safety Report 21463909 (Version 3)
Quarter: 2022Q4

REPORT INFORMATION
  Report Type: Report from Study
  Country: US (occurrence: US)
  Receive Date: 20221017
  Receipt Date: 20221111
  Transmission Date: 20230113
  Serious: No
  Sender: FDA-Public Use
  Company Number: US-JNJFOC-20220957791

PATIENT
  Age: 17 Year
  Sex: Male

DRUGS (2)
  1. STELARA [Suspect]
     Active Substance: USTEKINUMAB
     Indication: Crohn^s disease
     Dosage: STRENGTH: 90.00 MG/ML
     Route: 058
     Dates: start: 202202
  2. STELARA [Suspect]
     Active Substance: USTEKINUMAB
     Route: 058
     Dates: start: 202207

REACTIONS (4)
  - Syringe issue [Unknown]
  - Underdose [Unknown]
  - Accidental exposure to product [Unknown]
  - Off label use [Unknown]

NARRATIVE: CASE EVENT DATE: 20220201
